FAERS Safety Report 11106831 (Version 2)
Quarter: 2015Q2

REPORT INFORMATION
  Report Type: Spontaneous
  Country: BR (occurrence: BR)
  Receive Date: 20150512
  Receipt Date: 20150625
  Transmission Date: 20150821
  Serious: Yes (Hospitalization)
  Sender: FDA-Public Use
  Company Number: BR-ELI_LILLY_AND_COMPANY-BR201503001523

PATIENT
  Sex: Female
  Weight: 59 kg

DRUGS (3)
  1. LABIRIN [Concomitant]
     Active Substance: BETAHISTINE
     Dosage: 16 MG, QD
     Route: 065
     Dates: start: 2010
  2. SUPRELLE [Concomitant]
     Dosage: UNK, QD
     Route: 065
     Dates: start: 2005
  3. CYMBALTA [Suspect]
     Active Substance: DULOXETINE HYDROCHLORIDE
     Indication: DEPRESSION
     Dosage: 60 MG, QD
     Route: 048
     Dates: start: 201303

REACTIONS (8)
  - Transient global amnesia [Recovered/Resolved]
  - Paraesthesia [Unknown]
  - Depressive symptom [Unknown]
  - Drug withdrawal syndrome [Unknown]
  - Speech disorder [Unknown]
  - Blood pressure increased [Unknown]
  - Hypoaesthesia [Unknown]
  - Headache [Unknown]
